FAERS Safety Report 4416222-X (Version None)
Quarter: 2004Q3

REPORT INFORMATION
  Report Type: 
  Country: None (occurrence: None)
  Receive Date: 20040803
  Receipt Date: 20040720
  Transmission Date: 20050211
  Serious: Yes (Hospitalization)
  Sender: FDA-Public Use
  Company Number: US-JNJFOC-20040403753

PATIENT
  Age: 48 Year
  Sex: Female

DRUGS (10)
  1. DURAGESIC [Suspect]
     Indication: PAIN
     Dosage: SEE IMAGE
     Route: 062
     Dates: start: 20020101, end: 20040430
  2. DURAGESIC [Suspect]
     Indication: PAIN
     Dosage: SEE IMAGE
     Route: 062
     Dates: start: 20040401
  3. DURAGESIC [Suspect]
     Indication: PAIN
     Dosage: SEE IMAGE
     Route: 062
     Dates: start: 20040401
  4. DURAGESIC [Suspect]
  5. DURAGESIC [Suspect]
  6. DURAGESIC [Suspect]
  7. DURAGESIC [Suspect]
  8. DURAGESIC [Suspect]
  9. VICODN (VICODIN) [Concomitant]
  10. ATIVAN [Concomitant]

REACTIONS (8)
  - BILIARY NEOPLASM [None]
  - CHOLELITHIASIS [None]
  - DIZZINESS [None]
  - INADEQUATE ANALGESIA [None]
  - MEDICATION ERROR [None]
  - NAUSEA [None]
  - PHARMACEUTICAL PRODUCT COMPLAINT [None]
  - VOMITING [None]
